FAERS Safety Report 8170846-5 (Version None)
Quarter: 2012Q1

REPORT INFORMATION
  Report Type: 
  Country: None (occurrence: None)
  Receive Date: 20120106
  Receipt Date: 20110119
  Transmission Date: 20120608
  Serious: Yes (Life-Threatening, Hospitalization)
  Sender: FDA-Public Use
  Company Number: US-005841

PATIENT
  Age: 15 Year
  Sex: Female
  Weight: 59.4 kg

DRUGS (7)
  1. ABILIFY [Concomitant]
  2. MULTIHANCE [Suspect]
  3. LEXAPRO [Concomitant]
  4. ^RELAXING MED^ [Concomitant]
  5. MULTIHANCE [Suspect]
     Indication: NUCLEAR MAGNETIC RESONANCE IMAGING BRAIN
     Dosage: 11.8ML ONCE INTRAVENOUS (NOT OTHERWISE SPECIFIED)
     Route: 042
     Dates: start: 20110114, end: 20110114
  6. MULTIHANCE [Suspect]
     Indication: CEREBROVASCULAR ARTERIOVENOUS MALFORMATION
     Dosage: 11.8ML ONCE INTRAVENOUS (NOT OTHERWISE SPECIFIED)
     Route: 042
     Dates: start: 20110114, end: 20110114
  7. MULTIHANCE [Suspect]
     Indication: HEMIPARESIS
     Dosage: 11.8ML ONCE INTRAVENOUS (NOT OTHERWISE SPECIFIED)
     Route: 042
     Dates: start: 20110114, end: 20110114

REACTIONS (1)
  - ANAPHYLACTIC REACTION [None]
